FAERS Safety Report 12489142 (Version 2)
Quarter: 2018Q1

REPORT INFORMATION
  Report Type: Report from Study
  Country: US (occurrence: US)
  Receive Date: 20160622
  Receipt Date: 20180118
  Transmission Date: 20180508
  Serious: Yes (Hospitalization, Other)
  Sender: FDA-Public Use
  Company Number: US-TAKEDA-2015MPI006150

PATIENT
  Age: 57 Year
  Sex: Male
  Weight: 112.4 kg

DRUGS (15)
  1. OMEPRAZOLE. [Concomitant]
     Active Substance: OMEPRAZOLE
     Dosage: 40 MG, QD
  2. URSODIOL. [Concomitant]
     Active Substance: URSODIOL
     Dosage: 300 MG, TID
     Route: 048
  3. ACYCLOVIR                          /00587301/ [Concomitant]
     Active Substance: ACYCLOVIR
     Dosage: 400 MG, BID
     Route: 048
  4. IXAZOMIB [Suspect]
     Active Substance: IXAZOMIB
     Indication: ACUTE MYELOID LEUKAEMIA
     Dosage: 1 MG, UNK
     Route: 048
     Dates: start: 20150831, end: 20150910
  5. CYTARABINE. [Suspect]
     Active Substance: CYTARABINE
     Indication: ACUTE MYELOID LEUKAEMIA
     Dosage: 2310 MG, UNK
     Route: 042
     Dates: start: 20150831, end: 20150905
  6. SERTRALINE [Concomitant]
     Active Substance: SERTRALINE HYDROCHLORIDE
     Dosage: 100 MG, QD
     Route: 048
  7. AUGMENTIN [Concomitant]
     Active Substance: AMOXICILLIN\CLAVULANATE POTASSIUM
     Dosage: 875/125 MG, BID
     Route: 048
  8. LACTULOSE. [Concomitant]
     Active Substance: LACTULOSE
  9. MULTI VITAMIN [Concomitant]
     Active Substance: VITAMINS
     Dosage: UNK, QD
     Route: 048
  10. MITOXANTRONE [Suspect]
     Active Substance: MITOXANTRONE HYDROCHLORIDE
     Indication: ACUTE MYELOID LEUKAEMIA
     Dosage: 14 MG, UNK
     Route: 042
     Dates: start: 20150831, end: 20150905
  11. RAMIPRIL. [Concomitant]
     Active Substance: RAMIPRIL
     Dosage: 1.25 MG, QD
     Route: 048
  12. MIRALAX [Concomitant]
     Active Substance: POLYETHYLENE GLYCOL 3350
  13. ETOPOSIDE. [Suspect]
     Active Substance: ETOPOSIDE
     Indication: ACUTE MYELOID LEUKAEMIA
     Dosage: 185 MG, UNK
     Route: 042
     Dates: start: 20150831, end: 20150905
  14. CARVEDILOL. [Concomitant]
     Active Substance: CARVEDILOL
     Dosage: 3.125 MG, BID
     Route: 048
  15. LASIX [Concomitant]
     Active Substance: FUROSEMIDE

REACTIONS (3)
  - Lung infection [Unknown]
  - Sepsis [Unknown]
  - Febrile neutropenia [Recovered/Resolved]

NARRATIVE: CASE EVENT DATE: 20150913
